FAERS Safety Report 8365137-3 (Version None)
Quarter: 2012Q2

REPORT INFORMATION
  Report Type: 
  Country: None (occurrence: None)
  Receive Date: 20120516
  Receipt Date: 20120508
  Transmission Date: 20120825
  Serious: Yes (Hospitalization, Other)
  Sender: FDA-Public Use
  Company Number: US-ABBOTT-12P-163-0899199-00

PATIENT
  Sex: Female
  Weight: 68.554 kg

DRUGS (6)
  1. HUMIRA [Suspect]
     Indication: ANKYLOSING SPONDYLITIS
     Dates: start: 20101201, end: 20110401
  2. HUMIRA [Suspect]
     Dates: start: 20111001
  3. CALCIUM [Concomitant]
     Indication: MINERAL SUPPLEMENTATION
  4. FORTAO [Concomitant]
     Indication: OSTEOPOROSIS
     Dates: start: 20100101
  5. HUMIRA [Suspect]
     Dates: start: 20110401, end: 20110701
  6. FISH OIL [Concomitant]
     Indication: SUPPLEMENTATION THERAPY

REACTIONS (7)
  - BACK PAIN [None]
  - BLOOD SODIUM DECREASED [None]
  - PAIN IN EXTREMITY [None]
  - ARTHRALGIA [None]
  - RHINORRHOEA [None]
  - OSTEOARTHRITIS [None]
  - EAR DISCOMFORT [None]
